FAERS Safety Report 5195369-7 (Version None)
Quarter: 2006Q4

REPORT INFORMATION
  Report Type: 
  Country: None (occurrence: None)
  Receive Date: 20061229
  Receipt Date: 20061222
  Transmission Date: 20070319
  Serious: Yes (Congenital Anomaly, Other)
  Sender: FDA-Public Use
  Company Number: US-PFIZER INC-2006155304

PATIENT
  Age: 5 Month
  Sex: Male

DRUGS (2)
  1. ACCUPRIL [Suspect]
     Dosage: TEXT:UNKNOWN
  2. LIPITOR [Suspect]
     Dosage: TEXT:UNKNOWN

REACTIONS (2)
  - HEART DISEASE CONGENITAL [None]
  - TRANSMISSION OF DRUG VIA SEMEN [None]
